FAERS Safety Report 19154541 (Version 1)
Quarter: 2021Q2

REPORT INFORMATION
  Report Type: Other
  Country: IN (occurrence: IN)
  Receive Date: 20210419
  Receipt Date: 20210419
  Transmission Date: 20210717
  Serious: No
  Sender: FDA-Public Use
  Company Number: IN-SIGA TECHNOLOGIES, INC.-2109475

PATIENT
  Age: 32 Year
  Sex: Female

DRUGS (7)
  1. TPOXX [Suspect]
     Active Substance: TECOVIRIMAT
     Indication: VACCINIA VIRUS INFECTION
     Route: 048
     Dates: start: 20200923, end: 20201006
  2. LINEZOLID. [Concomitant]
     Active Substance: LINEZOLID
  3. CEFOPERAZONE/SULBACTAM INTRAVENOUS [Concomitant]
  4. CLINDAMYCIN. [Concomitant]
     Active Substance: CLINDAMYCIN
  5. INTRAVENOUS ANALGESICS ? NOT SPECIFIED [Concomitant]
  6. VITAMIN SUPPLEMENTS [Concomitant]
     Active Substance: VITAMINS
  7. ACYCLOVIR. [Concomitant]
     Active Substance: ACYCLOVIR

REACTIONS (4)
  - Pain [Recovered/Resolved]
  - Headache [Recovered/Resolved]
  - Decreased appetite [Unknown]
  - Nausea [Unknown]
